FAERS Safety Report 9864017 (Version 1)
Quarter: 2014Q1

REPORT INFORMATION
  Report Type: Report from Study
  Country: CA (occurrence: CA)
  Receive Date: 20140203
  Receipt Date: 20140203
  Transmission Date: 20141002
  Serious: Yes (Hospitalization)
  Sender: FDA-Public Use
  Company Number: CA-ABBVIE-14P-028-1195532-00

PATIENT
  Sex: Male

DRUGS (1)
  1. HUMIRA [Suspect]
     Indication: PSORIATIC ARTHROPATHY
     Dosage: LATEST DOSE: 17-JAN-2014
     Route: 058
     Dates: start: 20100628

REACTIONS (9)
  - Dizziness [Recovered/Resolved]
  - Spinal column stenosis [Not Recovered/Not Resolved]
  - Oropharyngeal pain [Recovered/Resolved]
  - Pharyngeal inflammation [Recovered/Resolved]
  - Gait disturbance [Not Recovered/Not Resolved]
  - Concussion [Recovering/Resolving]
  - Balance disorder [Not Recovered/Not Resolved]
  - Fall [Recovered/Resolved]
  - Pain in extremity [Not Recovered/Not Resolved]
